FAERS Safety Report 4576993-9 (Version None)
Quarter: 2005Q1

REPORT INFORMATION
  Report Type: 
  Country: None (occurrence: None)
  Receive Date: 20050208
  Receipt Date: 20050128
  Transmission Date: 20050727
  Serious: No
  Sender: FDA-Public Use
  Company Number: 2005UW01582

PATIENT
  Age: 60 Year
  Sex: Female

DRUGS (4)
  1. PRILOSEC OTC [Suspect]
     Indication: ABDOMINAL PAIN UPPER
     Dates: start: 20040127
  2. ASPIRIN [Concomitant]
  3. ANXIETY MEDICATION [Concomitant]
  4. TENORETIC 100 [Concomitant]

REACTIONS (4)
  - DYSPNOEA [None]
  - GENERALISED ERYTHEMA [None]
  - RASH GENERALISED [None]
  - SYNCOPE [None]
